FAERS Safety Report 6486783-8 (Version None)
Quarter: 2009Q4

REPORT INFORMATION
  Report Type: 
  Country: None (occurrence: None)
  Receive Date: 20091123
  Receipt Date: 20090910
  Transmission Date: 20100525
  Serious: No
  Sender: FDA-Public Use
  Company Number: 8051930

PATIENT
  Age: 57 Year
  Sex: Female
  Weight: 73.4 kg

DRUGS (12)
  1. CIMZIA [Suspect]
     Indication: CROHN'S DISEASE
     Dosage: 400 MG SC
     Route: 058
     Dates: start: 20091003
  2. ASACOL [Concomitant]
  3. METOPROLOL TARTRATE [Concomitant]
  4. ASPIRIN [Concomitant]
  5. FAMOTIDINE [Concomitant]
  6. MULTI-VITAMIN [Concomitant]
  7. ZYRTEC [Concomitant]
  8. PROMETHAZINE [Concomitant]
  9. HYOSCYAMINE [Concomitant]
  10. HYDROXYZINE [Concomitant]
  11. TYLENOL (CAPLET) [Concomitant]
  12. ULTRAM [Concomitant]

REACTIONS (1)
  - URINARY TRACT INFECTION [None]
